FAERS Safety Report 10711279 (Version 1)
Quarter: 2015Q1

REPORT INFORMATION
  Report Type: Spontaneous
  Country: FR (occurrence: FR)
  Receive Date: 20150114
  Receipt Date: 20150114
  Transmission Date: 20150721
  Serious: Yes (Hospitalization)
  Sender: FDA-Public Use
  Company Number: FR-PERRIGO-15FR000002

PATIENT
  Age: 2 Year
  Sex: Male

DRUGS (1)
  1. LORATADINE 10 MG 612 [Suspect]
     Active Substance: LORATADINE
     Indication: PRODUCT USED FOR UNKNOWN INDICATION
     Dosage: UNK, UNK
     Route: 065

REACTIONS (3)
  - Acute kidney injury [Unknown]
  - Haemolytic anaemia [Recovering/Resolving]
  - Chronic kidney disease [Unknown]
